FAERS Safety Report 15897839 (Version 7)
Quarter: 2019Q2

REPORT INFORMATION
  Report Type: Report from Study
  Country: None (occurrence: US)
  Receive Date: 20190201
  Receipt Date: 20190527
  Transmission Date: 20190711
  Serious: Yes (Hospitalization)
  Sender: FDA-Public Use
  Company Number: US-ABBVIE-19K-163-2643665-00

PATIENT
  Age: 65 Year
  Sex: Female
  Weight: 83.99 kg

DRUGS (4)
  1. HUMIRA [Suspect]
     Active Substance: ADALIMUMAB
     Indication: CROHN^S DISEASE
     Dosage: FREQUENCY 6, DAYS 84 BI-WEEKLY/WEEKLY: BI-WEEKLY
     Route: 058
     Dates: start: 201812, end: 20190317
  2. CANASA [Concomitant]
     Active Substance: MESALAMINE
     Indication: INFLAMMATION
  3. METOPROLOL. [Concomitant]
     Active Substance: METOPROLOL
     Indication: HYPERTENSION
  4. HYDRALAZINE [Concomitant]
     Active Substance: HYDRALAZINE HYDROCHLORIDE
     Indication: HYPERTENSION

REACTIONS (7)
  - Nasopharyngitis [Recovered/Resolved]
  - Sinus headache [Recovered/Resolved]
  - Frequent bowel movements [Recovering/Resolving]
  - Vomiting [Recovered/Resolved]
  - Large intestinal stenosis [Recovered/Resolved]
  - Crohn^s disease [Recovered/Resolved]
  - Blood iron decreased [Unknown]

NARRATIVE: CASE EVENT DATE: 201812
